FAERS Safety Report 8611038 (Version 2)
Quarter: 2012Q4

REPORT INFORMATION
  Report Type: 
  Country: US (occurrence: US)
  Receive Date: 20120612
  Receipt Date: 20120910
  Transmission Date: 20130627
  Serious: Yes (Hospitalization)
  Sender: FDA-Public Use
  Company Number: US-ELI_LILLY_AND_COMPANY-US201202006880

PATIENT
  Sex: Female
  Weight: 109.75 kg

DRUGS (1)
  1. FORTEO [Suspect]
     Indication: SPINAL COMPRESSION FRACTURE
     Dosage: 20 ug, qd

REACTIONS (5)
  - Cardiac failure congestive [Recovered/Resolved]
  - Chronic obstructive pulmonary disease [Recovered/Resolved]
  - Dyspnoea [Recovered/Resolved]
  - Injection site bruising [Recovered/Resolved]
  - Off label use [Unknown]
